FAERS Safety Report 14812759 (Version 3)
Quarter: 2018Q2

REPORT INFORMATION
  Report Type: Report from Study
  Country: CN (occurrence: CN)
  Receive Date: 20180426
  Receipt Date: 20180516
  Transmission Date: 20180711
  Serious: Yes (Hospitalization)
  Sender: FDA-Public Use
  Company Number: CN-AMGEN-CHNCT2018055485

PATIENT
  Age: 20 Year
  Sex: Male
  Weight: 108.5 kg

DRUGS (14)
  1. POLYENE PHOSPHATIDYLCHOLINE [Concomitant]
     Active Substance: PHOSPHOLIPID
     Dosage: 456 MG, 10-456 ML, UNK
     Dates: start: 20180324, end: 20180504
  2. DEXAMETHASONE. [Concomitant]
     Active Substance: DEXAMETHASONE
     Dosage: 15-20 MG, UNK
     Dates: start: 20180318, end: 20180328
  3. ACETAMINOPHEN. [Concomitant]
     Active Substance: ACETAMINOPHEN
     Dosage: UNK
  4. BLINATUMOMAB [Suspect]
     Active Substance: BLINATUMOMAB
     Indication: B PRECURSOR TYPE ACUTE LEUKAEMIA
     Dosage: 1 UNK, QD
     Route: 042
     Dates: start: 20180321
  5. COD-LIVER OIL [Concomitant]
     Active Substance: FISH OIL
     Dosage: 3 GTT, UNK
     Route: 045
     Dates: start: 20180325, end: 20180412
  6. POVIDONE-IODINE. [Concomitant]
     Active Substance: POVIDONE-IODINE
     Dosage: 10 ML, UNK
     Route: 061
     Dates: start: 20180326, end: 20180412
  7. BICYCLOL [Concomitant]
     Active Substance: BICYCLOL
     Dosage: 50 MG, UNK
     Route: 048
     Dates: start: 20180327, end: 20180419
  8. MUPIROCIN. [Concomitant]
     Active Substance: MUPIROCIN
     Dosage: UNK
     Route: 061
     Dates: start: 20180326, end: 20180412
  9. CEFTAZIDIME. [Concomitant]
     Active Substance: CEFTAZIDIME
     Dosage: 1 G, UNK
     Route: 042
     Dates: start: 20180326, end: 20180401
  10. ACETAMINOPHEN. [Concomitant]
     Active Substance: ACETAMINOPHEN
     Dosage: 1 UNK, UNK
     Route: 048
     Dates: start: 20180321, end: 20180321
  11. BLINATUMOMAB [Suspect]
     Active Substance: BLINATUMOMAB
     Dosage: 28 MUG, UNK
     Route: 042
     Dates: end: 20180420
  12. FILGRASTIM [Concomitant]
     Active Substance: FILGRASTIM
     Dosage: 300 MUG, UNK
     Route: 058
     Dates: start: 20180326, end: 20180413
  13. PANTOPRAZOLE SODIUM. [Concomitant]
     Active Substance: PANTOPRAZOLE SODIUM
     Dosage: 40 MG, UNK
     Route: 042
     Dates: start: 20180318, end: 20180322
  14. ALLOPURINOL. [Concomitant]
     Active Substance: ALLOPURINOL
     Dosage: 0.1 G, UNK
     Route: 048
     Dates: start: 20180324, end: 20180405

REACTIONS (1)
  - Full blood count abnormal [Not Recovered/Not Resolved]

NARRATIVE: CASE EVENT DATE: 20180420
